FAERS Safety Report 7214785-2 (Version None)
Quarter: 2011Q1

REPORT INFORMATION
  Report Type: 
  Country: None (occurrence: None)
  Receive Date: 20110107
  Receipt Date: 20100216
  Transmission Date: 20110831
  Serious: No
  Sender: FDA-Public Use
  Company Number: A0844737A

PATIENT
  Sex: Male

DRUGS (3)
  1. LOVAZA [Suspect]
     Dosage: 2G TWICE PER DAY
     Route: 048
     Dates: start: 20091220, end: 20100120
  2. IBUPROFEN [Concomitant]
  3. MULTI-VITAMIN [Concomitant]

REACTIONS (1)
  - MUSCLE SPASMS [None]
